FAERS Safety Report 17109587 (Version 1)
Quarter: 2019Q4

REPORT INFORMATION
  Report Type: Report from Study
  Country: None (occurrence: RO)
  Receive Date: 20191204
  Receipt Date: 20191204
  Transmission Date: 20200122
  Serious: Yes (Other)
  Sender: FDA-Public Use
  Company Number: RO-ABBVIE-19K-135-3178200-00

PATIENT
  Age: 48 Year
  Sex: Female

DRUGS (2)
  1. DUODOPA [Suspect]
     Active Substance: CARBIDOPA\LEVODOPA
     Indication: PARKINSON^S DISEASE
     Dosage: DM=2.80??DC=3.80??ED=1.00??NRED=4;??DMN=0.00??DCN=0.00??EDN=0.00??NREDN=0
     Route: 050
     Dates: start: 20140714
  2. VIREGYT [Concomitant]
     Indication: PARKINSON^S DISEASE
     Route: 048
     Dates: start: 20191129

REACTIONS (5)
  - Cerebellar ischaemia [Recovering/Resolving]
  - Tremor [Recovering/Resolving]
  - Central nervous system lesion [Recovering/Resolving]
  - Vitamin D deficiency [Recovering/Resolving]
  - Wallerian degeneration [Recovering/Resolving]

NARRATIVE: CASE EVENT DATE: 20191129
